FAERS Safety Report 9594055 (Version 1)
Quarter: 2013Q4

REPORT INFORMATION
  Report Type: Spontaneous
  Country: US (occurrence: None)
  Receive Date: 20131002
  Receipt Date: 20131002
  Transmission Date: 20140711
  Serious: Yes (Hospitalization, Other)
  Sender: FDA-Public Use
  Company Number: NSR_01258_2013

PATIENT
  Age: 24 Month
  Sex: Male
  Weight: 13.5 kg

DRUGS (1)
  1. LAMOTRIGINE [Suspect]
     Indication: POST-TRAUMATIC EPILEPSY
     Dosage: 21 DF 1X, [NOT THE PRESCRIBED DOSE] ORAL)
     Route: 048

REACTIONS (7)
  - Toxicity to various agents [None]
  - Agitation [None]
  - Crying [None]
  - Myoclonus [None]
  - Accidental exposure to product by child [None]
  - Accidental overdose [None]
  - Convulsion [None]
